FAERS Safety Report 23774905 (Version 1)
Quarter: 2024Q2

REPORT INFORMATION
  Report Type: Spontaneous
  Country: FR (occurrence: FR)
  Receive Date: 20240423
  Receipt Date: 20240423
  Transmission Date: 20240716
  Serious: Yes (Hospitalization)
  Sender: FDA-Public Use
  Company Number: None

PATIENT
  Age: 64 Year
  Sex: Male
  Weight: 80 kg

DRUGS (4)
  1. PIPERACILLIN AND TAZOBACTAM [Suspect]
     Active Substance: PIPERACILLIN SODIUM\TAZOBACTAM SODIUM
     Indication: Abscess limb
     Dosage: 8 GRAM, QD
     Route: 042
     Dates: start: 20240323, end: 20240327
  2. CLINDAMYCIN [Suspect]
     Active Substance: CLINDAMYCIN
     Indication: Osteitis
     Dosage: 1800 MILLIGRAM, QD
     Route: 048
     Dates: start: 20240327, end: 20240329
  3. LEVOFLOXACIN [Suspect]
     Active Substance: LEVOFLOXACIN
     Indication: Osteitis
     Dosage: 500 MILLIGRAM, QD (500MG LOADING DOSE THEN 250MG/2 DAYS)
     Route: 048
     Dates: start: 20240327, end: 20240329
  4. AUGMENTIN [Suspect]
     Active Substance: AMOXICILLIN\CLAVULANATE POTASSIUM
     Indication: Abscess limb
     Dosage: UNKNOWN
     Route: 048
     Dates: start: 20240318, end: 20240322

REACTIONS (1)
  - Hepatitis [Recovering/Resolving]
